FAERS Safety Report 10310341 (Version 1)
Quarter: 2014Q3

REPORT INFORMATION
  Report Type: Spontaneous
  Country: GB (occurrence: GB)
  Receive Date: 20140717
  Receipt Date: 20140717
  Transmission Date: 20150326
  Serious: Yes (Other)
  Sender: FDA-Public Use
  Company Number: GB-ELI_LILLY_AND_COMPANY-GB201407003155

PATIENT
  Sex: Male

DRUGS (17)
  1. IRON [Concomitant]
     Active Substance: IRON
     Dosage: UNK, WEEKLY (1/W)
  2. HUMALOG [Suspect]
     Active Substance: INSULIN LISPRO
     Indication: DIABETES MELLITUS
     Dosage: 30 U, TID
     Route: 058
     Dates: start: 1984, end: 201405
  3. ALFACALCIDOL [Concomitant]
     Active Substance: ALFACALCIDOL
  4. FENTANYL. [Concomitant]
     Active Substance: FENTANYL
  5. DOXAZOCIN [Concomitant]
     Active Substance: DOXAZOSIN MESYLATE
  6. LOSARTAN [Concomitant]
     Active Substance: LOSARTAN
  7. B12                                /00056202/ [Concomitant]
     Dosage: 1 DF, EVERY THREE MONTHS
  8. OMEPRAZOLE. [Concomitant]
     Active Substance: OMEPRAZOLE
  9. PARACETAMOL [Concomitant]
     Active Substance: ACETAMINOPHEN
  10. LANTUS [Concomitant]
     Active Substance: INSULIN GLARGINE
  11. QUININE SULPHATE [Concomitant]
     Active Substance: QUININE SULFATE
  12. CALCIUM [Concomitant]
     Active Substance: CALCIUM
     Dosage: 500 MG, TID
  13. BISOPROLOL [Concomitant]
     Active Substance: BISOPROLOL
  14. ROSUVASTATIN [Concomitant]
     Active Substance: ROSUVASTATIN
  15. ERYTHROPOIETIN [Concomitant]
     Active Substance: ERYTHROPOIETIN
     Dosage: 40 MG, WEEKLY (1/W)
  16. HUMALOG [Suspect]
     Active Substance: INSULIN LISPRO
     Dosage: 15 U, UNKNOWN
     Route: 058
     Dates: start: 201405
  17. BUMETANIDE. [Concomitant]
     Active Substance: BUMETANIDE

REACTIONS (1)
  - Bladder cancer [Not Recovered/Not Resolved]

NARRATIVE: CASE EVENT DATE: 2007
